FAERS Safety Report 24956888 (Version 1)
Quarter: 2025Q1

REPORT INFORMATION
  Report Type: Spontaneous
  Country: IT (occurrence: IT)
  Receive Date: 20250211
  Receipt Date: 20250211
  Transmission Date: 20250408
  Serious: Yes (Other)
  Sender: PFIZER
  Company Number: IT-GSK-IT2025EME007375

PATIENT
  Sex: Female

DRUGS (3)
  1. CARBOPLATIN [Suspect]
     Active Substance: CARBOPLATIN
     Indication: Endometrial cancer metastatic
     Dates: start: 202404
  2. DOSTARLIMAB [Suspect]
     Active Substance: DOSTARLIMAB
     Indication: Endometrial cancer metastatic
     Dates: start: 202404
  3. PACLITAXEL [Suspect]
     Active Substance: PACLITAXEL
     Indication: Endometrial cancer metastatic

REACTIONS (17)
  - Ventricular dyskinesia [Unknown]
  - Left ventricular dysfunction [Unknown]
  - Gait disturbance [Unknown]
  - Asthenia [Unknown]
  - Muscular weakness [Unknown]
  - Mitral valve incompetence [Unknown]
  - Tricuspid valve incompetence [Unknown]
  - Ejection fraction decreased [Not Recovered/Not Resolved]
  - Pollakiuria [Unknown]
  - Dysphonia [Unknown]
  - Hypoaesthesia [Unknown]
  - Aortic valve sclerosis [Unknown]
  - Bundle branch block left [Unknown]
  - Extensor plantar response [Unknown]
  - Areflexia [Unknown]
  - Lymphadenopathy [Unknown]
  - Neoplasm progression [Unknown]
